FAERS Safety Report 9263582 (Version 1)
Quarter: 2013Q2

REPORT INFORMATION
  Report Type: Spontaneous
  Country: US (occurrence: US)
  Receive Date: 20130430
  Receipt Date: 20130430
  Transmission Date: 20140414
  Serious: No
  Sender: FDA-Public Use
  Company Number: US-PFIZER INC-2013132894

PATIENT
  Age: 68 Year
  Sex: Male

DRUGS (1)
  1. ADVIL [Suspect]
     Indication: OSTEOARTHRITIS
     Dosage: UNK

REACTIONS (2)
  - Off label use [Unknown]
  - Constipation [Unknown]
